FAERS Safety Report 4297121-3 (Version None)
Quarter: 2004Q1

REPORT INFORMATION
  Report Type: 
  Country: None (occurrence: None)
  Receive Date: 20040213
  Receipt Date: 20040130
  Transmission Date: 20041129
  Serious: Yes (Hospitalization)
  Sender: FDA-Public Use
  Company Number: ENZ-ABE-160

PATIENT
  Age: 60 Year
  Sex: Male
  Weight: 81.3 kg

DRUGS (4)
  1. ABELCET [Suspect]
     Indication: ANTIFUNGAL PROPHYLAXIS
     Dosage: 1 MG/KG DAILY IV
     Route: 042
     Dates: start: 20040107, end: 20040107
  2. ABELCET [Suspect]
     Indication: ANTIFUNGAL PROPHYLAXIS
     Dosage: 2.5 MG/KG DAILY IV
     Route: 042
     Dates: start: 20040108, end: 20040109
  3. ABELCET [Suspect]
     Indication: ANTIFUNGAL PROPHYLAXIS
     Dosage: 2.5 MG/KG DAILY IV
     Route: 042
     Dates: start: 20040112, end: 20040112
  4. ABELCET [Suspect]
     Indication: ANTIFUNGAL PROPHYLAXIS
     Dosage: 5 MG/KG DAILY IV
     Route: 042
     Dates: start: 20040114, end: 20040114

REACTIONS (5)
  - ACIDOSIS [None]
  - BLOOD GLUCOSE INCREASED [None]
  - BLOOD POTASSIUM DECREASED [None]
  - BLOOD SODIUM DECREASED [None]
  - RENAL FAILURE [None]
